FAERS Safety Report 15095991 (Version 1)
Quarter: 2018Q3

REPORT INFORMATION
  Report Type: Spontaneous
  Country: US (occurrence: US)
  Receive Date: 20180702
  Receipt Date: 20180702
  Transmission Date: 20181010
  Serious: No
  Sender: FDA-Public Use
  Company Number: US-009507513-1807USA000007

PATIENT
  Sex: Female

DRUGS (1)
  1. NEXPLANON [Suspect]
     Active Substance: ETONOGESTREL
     Indication: CONTRACEPTION
     Dosage: 1 DF (68 MG), ONCE EVERY THREE YEARS
     Route: 059
     Dates: start: 20170714, end: 20180307

REACTIONS (2)
  - Headache [Unknown]
  - Weight increased [Unknown]
